FAERS Safety Report 17119968 (Version 1)
Quarter: 2019Q4

REPORT INFORMATION
  Report Type: Spontaneous
  Country: SE (occurrence: SE)
  Receive Date: 20191206
  Receipt Date: 20191206
  Transmission Date: 20200122
  Serious: Yes (Hospitalization)
  Sender: FDA-Public Use
  Company Number: SE-TEVA-2019-SE-1146889

PATIENT
  Age: 54 Year
  Sex: Female

DRUGS (2)
  1. DIAZEPAM. [Suspect]
     Active Substance: DIAZEPAM
     Dosage: ^6 STESOLID^
     Route: 048
     Dates: start: 20180318, end: 20180318
  2. LERGIGAN (PROMETHAZINE HYDROCHLORIDE) [Suspect]
     Active Substance: PROMETHAZINE HYDROCHLORIDE
     Dosage: 19X25 MG OF WHICH 250 MG IN THE MORNING AT 06, ^THE REST ABOUT 6 PM^
     Route: 048
     Dates: start: 20180318, end: 20180318

REACTIONS (4)
  - Vomiting [Unknown]
  - Miosis [Unknown]
  - Suicide attempt [Unknown]
  - Intentional overdose [Unknown]

NARRATIVE: CASE EVENT DATE: 20180318
